FAERS Safety Report 8866098 (Version 3)
Quarter: 2013Q1

REPORT INFORMATION
  Report Type: Report from Study
  Country: DE (occurrence: DE)
  Receive Date: 20121025
  Receipt Date: 20130213
  Transmission Date: 20140127
  Serious: Yes (Hospitalization)
  Sender: FDA-Public Use
  Company Number: DE-ROCHE-1148105

PATIENT
  Age: 60 Year
  Sex: Female
  Weight: 67 kg

DRUGS (8)
  1. BEVACIZUMAB [Suspect]
     Indication: BREAST CANCER
     Dosage: ROUTE AS PER PROTOCOL. LAST DOSE PRIOR TO SAE 01/OCT/2012, CYCLE 3.
     Route: 042
     Dates: start: 20120820
  2. PACLITAXEL [Suspect]
     Indication: BREAST CANCER
     Dosage: LAST DOSE PRIOR TO SAE 15/OCT/2012, CYCLE 3. DRUG TEMPORARILY INTERRUPTED.
     Route: 042
     Dates: start: 20120820, end: 20121022
  3. MYOCET [Suspect]
     Indication: BREAST CANCER
     Dosage: LAST DOSE PRIOR TO SAE 15/OCT/2012, CYCLE 3. DRUG TEMPORARILY INTERRUPTED.
     Route: 065
     Dates: start: 20120820, end: 20121022
  4. L-THYROXIN [Concomitant]
  5. FUCICORT [Concomitant]
     Route: 065
     Dates: start: 20120925
  6. ECURAL FAT CREAM [Concomitant]
     Route: 065
     Dates: start: 20120910
  7. TANTUM VERDE (GERMANY) [Concomitant]
     Dosage: REPORTED AS 6,B
     Route: 065
     Dates: start: 20121008
  8. KAMISTAD (GERMANY) [Concomitant]
     Dosage: REPORTED AS 6,B
     Route: 065
     Dates: start: 20121008

REACTIONS (1)
  - Mucosal inflammation [Recovered/Resolved]
